FAERS Safety Report 11327980 (Version 1)
Quarter: 2015Q3

REPORT INFORMATION
  Report Type: Spontaneous
  Country: US (occurrence: US)
  Receive Date: 20150731
  Receipt Date: 20150731
  Transmission Date: 20151125
  Serious: Yes (Hospitalization)
  Sender: FDA-Public Use
  Company Number: US-PERRIGO-15US007559

PATIENT
  Age: 35 Year
  Sex: Female
  Weight: 63.49 kg

DRUGS (2)
  1. MUPIROCIN 2% RX 1N2 [Suspect]
     Active Substance: MUPIROCIN
     Dosage: SMALL AMOUNT, TID, TO STY NEAR LEFT EYE
     Route: 061
     Dates: start: 20150707, end: 20150707
  2. MUPIROCIN 2% RX 1N2 [Suspect]
     Active Substance: MUPIROCIN
     Indication: HORDEOLUM
     Dosage: SMALL AMOUNT, ONCE TO STY NEAR LEFT EYE
     Route: 061
     Dates: start: 20150708, end: 20150708

REACTIONS (9)
  - Eye pain [Unknown]
  - Off label use [Recovered/Resolved]
  - Eye irritation [Unknown]
  - Drug administered at inappropriate site [Recovered/Resolved]
  - Periorbital oedema [Unknown]
  - Eye discharge [Recovering/Resolving]
  - Visual impairment [Unknown]
  - Eye swelling [Recovering/Resolving]
  - Ocular hyperaemia [Unknown]

NARRATIVE: CASE EVENT DATE: 201507
